FAERS Safety Report 18048132 (Version 1)
Quarter: 2020Q3

REPORT INFORMATION
  Report Type: Spontaneous
  Country: US (occurrence: US)
  Receive Date: 20200720
  Receipt Date: 20200720
  Transmission Date: 20201103
  Serious: No
  Sender: FDA-Public Use
  Company Number: None

PATIENT
  Age: 63 Year
  Sex: Female

DRUGS (22)
  1. FLUOCIN [Concomitant]
  2. TRULICITY [Concomitant]
     Active Substance: DULAGLUTIDE
  3. LEVOTHYROXIN [Concomitant]
     Active Substance: LEVOTHYROXINE
  4. ZOFRAN [Concomitant]
     Active Substance: ONDANSETRON HYDROCHLORIDE
  5. ZANTAC [Concomitant]
     Active Substance: RANITIDINE HYDROCHLORIDE
  6. HYDROCHLOROT [Concomitant]
     Active Substance: HYDROCHLOROTHIAZIDE
  7. VENTOLIN [Concomitant]
     Active Substance: ALBUTEROL SULFATE
  8. LOSARTAN. [Concomitant]
     Active Substance: LOSARTAN
  9. PLAVIX [Concomitant]
     Active Substance: CLOPIDOGREL BISULFATE
  10. LASIX [Concomitant]
     Active Substance: FUROSEMIDE
  11. SYNTHROID [Concomitant]
     Active Substance: LEVOTHYROXINE SODIUM
  12. NITROSTAT [Concomitant]
     Active Substance: NITROGLYCERIN
  13. ZOLOFT [Concomitant]
     Active Substance: SERTRALINE HYDROCHLORIDE
  14. ALBUTEROL. [Concomitant]
     Active Substance: ALBUTEROL
  15. KETOCONAZOLE. [Concomitant]
     Active Substance: KETOCONAZOLE
  16. AMLODIPINE [Concomitant]
     Active Substance: AMLODIPINE BESYLATE
  17. KLOR?CON [Concomitant]
     Active Substance: POTASSIUM CHLORIDE
  18. REPATHA [Suspect]
     Active Substance: EVOLOCUMAB
     Indication: HYPERCHOLESTEROLAEMIA
     Dosage: ?          OTHER FREQUENCY:EVERY 2 WEEKS;?
     Route: 058
     Dates: start: 20190913
  19. CLOPIDOGREL [Concomitant]
     Active Substance: CLOPIDOGREL BISULFATE
  20. NORVASC [Concomitant]
     Active Substance: AMLODIPINE BESYLATE
  21. FLONASE [Concomitant]
     Active Substance: FLUTICASONE PROPIONATE
  22. METOPROLOL. [Concomitant]
     Active Substance: METOPROLOL

REACTIONS (2)
  - Abdominal pain [None]
  - Unevaluable event [None]

NARRATIVE: CASE EVENT DATE: 20200709
